FAERS Safety Report 8269176-2 (Version None)
Quarter: 2012Q2

REPORT INFORMATION
  Report Type: 
  Country: None (occurrence: None)
  Receive Date: 20120409
  Receipt Date: 20120330
  Transmission Date: 20120825
  Serious: Yes (Hospitalization, Other)
  Sender: FDA-Public Use
  Company Number: US-AMGEN-USACT2011039130

PATIENT
  Age: 86 Year
  Sex: Female
  Weight: 63.492 kg

DRUGS (15)
  1. LANOXIN [Concomitant]
     Dosage: 0.125 MG, QD
  2. LASIX [Concomitant]
     Dosage: 40 MG, UNK
  3. LEVOXYL [Concomitant]
  4. METFORMIN HCL [Concomitant]
     Dosage: 250 MG, UNK
  5. IRON [Concomitant]
     Dosage: 27 MG, UNK
  6. FEOSOL [Concomitant]
  7. PLACEBO [Suspect]
     Indication: CARDIAC FAILURE
     Dosage: UNK UNK, Q2WK
     Route: 058
     Dates: start: 20080226, end: 20120110
  8. COREG [Concomitant]
     Dosage: 6.25 MG, UNK
  9. SYNTHROID [Concomitant]
     Dosage: 88 MUG, UNK
  10. CHOLESTYRAMINE [Concomitant]
  11. COUMADIN [Concomitant]
     Dosage: 2.5 MG, UNK
  12. BLINDED DARBEPOETIN ALFA [Suspect]
     Indication: CARDIAC FAILURE
     Dosage: UNK UNK, Q2WK
     Route: 058
     Dates: start: 20080226, end: 20120110
  13. LOSARTAN POTASSIUM [Concomitant]
  14. ALDACTONE [Concomitant]
     Dosage: 25 MG, UNK
  15. URECHOLINE [Concomitant]

REACTIONS (23)
  - HEPATIC NEOPLASM MALIGNANT [None]
  - CARDIAC MURMUR [None]
  - TRICUSPID VALVE INCOMPETENCE [None]
  - AORTIC VALVE INCOMPETENCE [None]
  - PLEURAL EFFUSION [None]
  - HEPATIC MASS [None]
  - MITRAL VALVE INCOMPETENCE [None]
  - PULMONARY VALVE INCOMPETENCE [None]
  - DYSPNOEA [None]
  - INFERIOR VENA CAVA DILATATION [None]
  - SPLENOMEGALY [None]
  - NON-CARDIAC CHEST PAIN [None]
  - CHEST DISCOMFORT [None]
  - PORTAL HYPERTENSION [None]
  - OEDEMA PERIPHERAL [None]
  - CARDIOMEGALY [None]
  - METASTASES TO LIVER [None]
  - ASCITES [None]
  - SPLENIC NEOPLASM MALIGNANCY UNSPECIFIED [None]
  - MELANOMA RECURRENT [None]
  - PULMONARY HYPERTENSION [None]
  - BLOOD BILIRUBIN INCREASED [None]
  - RIGHT VENTRICULAR FAILURE [None]
